FAERS Safety Report 12388757 (Version 1)
Quarter: 2016Q2

REPORT INFORMATION
  Report Type: Spontaneous
  Country: US (occurrence: None)
  Receive Date: 20160519
  Receipt Date: 20160519
  Transmission Date: 20160815
  Serious: Yes (Life-Threatening)
  Sender: FDA-Public Use
  Company Number: None

PATIENT
  Age: 65 Year
  Sex: Male
  Weight: 75.2 kg

DRUGS (3)
  1. HALOPERIDOL. [Suspect]
     Active Substance: HALOPERIDOL
     Indication: AGITATION
     Route: 048
     Dates: start: 20160330, end: 20160404
  2. AMPICILLIN/SULBACTAM [Suspect]
     Active Substance: AMPICILLIN SODIUM\SULBACTAM SODIUM
     Indication: SURGERY
     Route: 042
     Dates: start: 20160324, end: 20160405
  3. AMPICILLIN/SULBACTAM [Suspect]
     Active Substance: AMPICILLIN SODIUM\SULBACTAM SODIUM
     Indication: PROPHYLAXIS
     Route: 042
     Dates: start: 20160324, end: 20160405

REACTIONS (13)
  - Hypoxia [None]
  - Withdrawal syndrome [None]
  - Aggression [None]
  - Seizure [None]
  - Arrhythmia [None]
  - Respiratory arrest [None]
  - Delirium tremens [None]
  - Bradycardia [None]
  - Pulse absent [None]
  - Electrocardiogram QT prolonged [None]
  - Loss of consciousness [None]
  - Hypotension [None]
  - Respiratory acidosis [None]

NARRATIVE: CASE EVENT DATE: 20160404
